FAERS Safety Report 23165855 (Version 5)
Quarter: 2024Q1

REPORT INFORMATION
  Report Type: Report from Study
  Country: US (occurrence: US)
  Receive Date: 20231109
  Receipt Date: 20240308
  Transmission Date: 20240410
  Serious: Yes (Other)
  Sender: FDA-Public Use
  Company Number: US-OTSUKA-2023_022923

PATIENT
  Sex: Male

DRUGS (4)
  1. TOLVAPTAN [Suspect]
     Active Substance: TOLVAPTAN
     Indication: Congenital cystic kidney disease
     Dosage: 45 MG, QD (EVERY MORNING)
     Route: 048
     Dates: start: 20230816
  2. TOLVAPTAN [Suspect]
     Active Substance: TOLVAPTAN
     Indication: Congenital cystic kidney disease
     Dosage: 15 MG, QD (8 HOURS LATER)
     Route: 048
     Dates: start: 20230816
  3. TOLVAPTAN [Suspect]
     Active Substance: TOLVAPTAN
     Dosage: 15 MG, QD (EVERY MORNING)
     Route: 048
     Dates: end: 202310
  4. TOLVAPTAN [Suspect]
     Active Substance: TOLVAPTAN
     Dosage: 15 MG, QD (8 HOURS LATER)
     Route: 048
     Dates: end: 202310

REACTIONS (15)
  - Surgery [Unknown]
  - Renal impairment [Unknown]
  - Drug intolerance [Unknown]
  - Ill-defined disorder [Recovered/Resolved]
  - Suspected COVID-19 [Not Recovered/Not Resolved]
  - Urine osmolarity decreased [Unknown]
  - Hyperhidrosis [Unknown]
  - Middle insomnia [Unknown]
  - Blood alkaline phosphatase increased [Unknown]
  - Nocturia [Unknown]
  - Polydipsia [Unknown]
  - Thirst [Unknown]
  - Polyuria [Unknown]
  - Pollakiuria [Unknown]
  - Drug ineffective [Unknown]

NARRATIVE: CASE EVENT DATE: 20230818
